FAERS Safety Report 19196670 (Version 1)
Quarter: 2021Q2

REPORT INFORMATION
  Report Type: Spontaneous
  Country: GB (occurrence: GB)
  Receive Date: 20210429
  Receipt Date: 20210429
  Transmission Date: 20210717
  Serious: Yes (Other)
  Sender: FDA-Public Use
  Company Number: GB-ORGANON-2005GBR008134

PATIENT
  Age: 22 Year
  Sex: Female

DRUGS (1)
  1. NEXPLANON [Suspect]
     Active Substance: ETONOGESTREL
     Dosage: 68 MILLIGRAM, IMPLANT
     Route: 059
     Dates: start: 2018, end: 20200518

REACTIONS (9)
  - Pregnancy test positive [Recovered/Resolved]
  - Nausea [Unknown]
  - Pregnancy with implant contraceptive [Recovered/Resolved]
  - Abortion spontaneous [Unknown]
  - Pregnancy test negative [Unknown]
  - Device failure [Unknown]
  - Unintended pregnancy [Recovered/Resolved]
  - Breast tenderness [Unknown]
  - Menstruation irregular [Unknown]

NARRATIVE: CASE EVENT DATE: 2018
